FAERS Safety Report 9618372 (Version 1)
Quarter: 2013Q4

REPORT INFORMATION
  Report Type: Spontaneous
  Country: US (occurrence: US)
  Receive Date: 20131014
  Receipt Date: 20131014
  Transmission Date: 20140711
  Serious: Yes (Other)
  Sender: FDA-Public Use
  Company Number: US-BRISTOL-MYERS SQUIBB COMPANY-19494749

PATIENT
  Age: 80 Year
  Sex: Female
  Weight: 62.58 kg

DRUGS (1)
  1. WARFARIN SODIUM [Suspect]
     Indication: ATRIAL FIBRILLATION
     Dosage: 5MG FOR 2 DAYS

REACTIONS (2)
  - Cardioversion [Unknown]
  - International normalised ratio abnormal [Unknown]
